FAERS Safety Report 6767916-2 (Version None)
Quarter: 2010Q2

REPORT INFORMATION
  Report Type: 
  Country: None (occurrence: None)
  Receive Date: 20100614
  Receipt Date: 20100602
  Transmission Date: 20101027
  Serious: Yes (Other)
  Sender: FDA-Public Use
  Company Number: US-SANOFI-AVENTIS-2010SA033794

PATIENT

DRUGS (1)
  1. KETEK [Suspect]
     Route: 065

REACTIONS (2)
  - AMPUTATION [None]
  - LIVER TRANSPLANT [None]
